FAERS Safety Report 11860554 (Version 3)
Quarter: 2016Q1

REPORT INFORMATION
  Report Type: Spontaneous
  Country: US (occurrence: US)
  Receive Date: 20151222
  Receipt Date: 20160119
  Transmission Date: 20160526
  Serious: Yes (Hospitalization)
  Sender: FDA-Public Use
  Company Number: US-UNITED THERAPEUTICS-UNT-2015-015989

PATIENT
  Age: 68 Year
  Sex: Male
  Weight: 81.63 kg

DRUGS (1)
  1. REMODULIN [Suspect]
     Active Substance: TREPROSTINIL
     Indication: PULMONARY HYPERTENSION
     Dosage: 0.037 ?G/KG, CONTINUING
     Route: 041
     Dates: start: 20081106

REACTIONS (5)
  - Respiratory distress [Recovered/Resolved]
  - Septic shock [Unknown]
  - Pneumonia [Unknown]
  - Cardiac failure congestive [Unknown]
  - Mental status changes [Recovered/Resolved]

NARRATIVE: CASE EVENT DATE: 20151215
